FAERS Safety Report 21349623 (Version 2)
Quarter: 2022Q4

REPORT INFORMATION
  Report Type: Spontaneous
  Country: DE (occurrence: DE)
  Receive Date: 20220919
  Receipt Date: 20221007
  Transmission Date: 20230113
  Serious: Yes (Hospitalization, Other)
  Sender: FDA-Public Use
  Company Number: DE-NOVARTISPH-NVSC2022DE205779

PATIENT
  Age: 80 Year
  Sex: Female

DRUGS (18)
  1. METFORMIN [Suspect]
     Active Substance: METFORMIN HYDROCHLORIDE
     Indication: Product used for unknown indication
     Dosage: 1000 MG (0.5-0-0.5-0, TABLETTEN)
     Route: 048
  2. RAMIPRIL [Suspect]
     Active Substance: RAMIPRIL
     Indication: Product used for unknown indication
     Dosage: 5 MG, (0.5-0-0.5-0, TABLETTEN)
     Route: 048
  3. RAMIPRIL [Suspect]
     Active Substance: RAMIPRIL
     Dosage: 5 MG, (0.5-0-0.5-0, TABLETTEN)
     Route: 048
  4. METOPROLOL [Suspect]
     Active Substance: METOPROLOL
     Indication: Product used for unknown indication
     Dosage: 47.5 MG, (0.5-0-0.5-0, RETARD-TABLETTEN)
     Route: 048
  5. TORSEMIDE [Suspect]
     Active Substance: TORSEMIDE
     Indication: Product used for unknown indication
     Dosage: 10 MG ( 1-0.5-0-0)
     Route: 048
  6. TORSEMIDE [Suspect]
     Active Substance: TORSEMIDE
     Dosage: 10 MG, (1-0.5-0-0, TABLETS)
     Route: 048
  7. ALLOPURINOL [Suspect]
     Active Substance: ALLOPURINOL
     Indication: Product used for unknown indication
     Dosage: 300 MG, 0-0-1-0, TABLETS
     Route: 048
  8. ALLOPURINOL [Suspect]
     Active Substance: ALLOPURINOL
     Dosage: 300 MG ( 0-0-1-0)
     Route: 048
  9. PENTAERYTHRITOL TETRANITRATE [Suspect]
     Active Substance: PENTAERYTHRITOL TETRANITRATE
     Indication: Product used for unknown indication
     Dosage: 50 MG QD, (1-0-0-0, TABLETS)
     Route: 048
  10. PENTAERYTHRITOL TETRANITRATE [Suspect]
     Active Substance: PENTAERYTHRITOL TETRANITRATE
     Dosage: 50 MG QD, (1-0-0-0, TABLETS)
     Route: 048
  11. ALENDRONIC ACID [Concomitant]
     Active Substance: ALENDRONIC ACID
     Indication: Product used for unknown indication
     Dosage: 70 MG, (NACH SCHEMA, TABLETTEN) (ACCORDING TO THE SCHEME, TABLETS)
     Route: 048
  12. VITAMIN D [Concomitant]
     Active Substance: VITAMIN D NOS
     Indication: Product used for unknown indication
     Dosage: 20000 IU, (1-0-0-0, KAPSELN)
     Route: 048
  13. ATORVASTATIN [Concomitant]
     Active Substance: ATORVASTATIN
     Indication: Product used for unknown indication
     Dosage: 40 MG,  (0-0-1-0, TABLETTEN/ TABLETS)
     Route: 048
  14. POTASSIUM CHLORIDE [Concomitant]
     Active Substance: POTASSIUM CHLORIDE
     Indication: Product used for unknown indication
     Dosage: 600 MG, (1-1-0-0, KAPSELN/ CAPSULES)
     Route: 048
  15. BENSERAZIDE [Concomitant]
     Active Substance: BENSERAZIDE
     Indication: Product used for unknown indication
     Dosage: UNK (25|100 MG, 0-0-1-0, TABLETTEN/ TABLETS)
     Route: 048
  16. BENSERAZIDE [Concomitant]
     Active Substance: BENSERAZIDE
     Dosage: UNK (25|100 MG, 0-0-1-0, TABLETS)
     Route: 048
  17. ASPIRIN [Concomitant]
     Active Substance: ASPIRIN
     Indication: Product used for unknown indication
     Dosage: 100 MG, (1-0-0-0, RETARD-TABLETTEN/ PROLONGED-RELEASE TABLETS)
     Route: 048
  18. CHOLECALCIFEROL [Concomitant]
     Active Substance: CHOLECALCIFEROL
     Indication: Product used for unknown indication
     Dosage: 20000 IU, QD (1-0-0-0)
     Route: 048

REACTIONS (13)
  - Acute kidney injury [Unknown]
  - Angina pectoris [Unknown]
  - Headache [Unknown]
  - Dyspnoea [Unknown]
  - Oedema peripheral [Unknown]
  - Chest pain [Unknown]
  - Cough [Unknown]
  - Fatigue [Unknown]
  - Muscular weakness [Unknown]
  - Pyrexia [Unknown]
  - Dehydration [Unknown]
  - Vomiting [Unknown]
  - Nausea [Unknown]
